FAERS Safety Report 20745831 (Version 1)
Quarter: 2022Q2

REPORT INFORMATION
  Report Type: Spontaneous
  Country: US (occurrence: US)
  Receive Date: 20220425
  Receipt Date: 20220425
  Transmission Date: 20220721
  Serious: Yes (Other)
  Sender: FDA-Public Use
  Company Number: US-BAYER-2022A055600

PATIENT
  Age: 73 Year
  Sex: Male

DRUGS (2)
  1. ASPIRIN [Suspect]
     Active Substance: ASPIRIN
  2. APIXABAN [Concomitant]
     Active Substance: APIXABAN

REACTIONS (4)
  - Gastrointestinal haemorrhage [None]
  - Gastric ulcer haemorrhage [None]
  - Duodenal ulcer haemorrhage [None]
  - Gastrointestinal vascular malformation haemorrhagic [None]
